FAERS Safety Report 8954556 (Version 1)
Quarter: 2012Q4

REPORT INFORMATION
  Report Type: Spontaneous
  Country: GB (occurrence: None)
  Receive Date: 20121130
  Receipt Date: 20121130
  Transmission Date: 20130627
  Serious: Yes (Hospitalization, Other)
  Sender: FDA-Public Use
  Company Number: GER/UKI/12/0026839

PATIENT

DRUGS (14)
  1. CETIRIZINE [Suspect]
     Dosage: 1 Dosage forms, 1 in 1 D, Oral
     Dates: start: 20121106, end: 20121108
  2. ATORVASTATIN (ATORVASTATIN) [Concomitant]
  3. CLOPIDOGREL (CLOPIDOGREL) [Concomitant]
  4. FOLIC ACID (FOLIC ACID) [Concomitant]
  5. ISOSORBIDE (ISOSORBIDE) [Concomitant]
  6. LEVEMIR (INSULIN DETEMIR) [Concomitant]
  7. MONTELUKAST (MONELUKAST) [Concomitant]
  8. NEBIVOLOL (NEBIVOLOL) [Concomitant]
  9. NITROLINGUAL (GLYCERYL TRINITRATE) [Concomitant]
  10. NOVORAPID (INSULIN ASPART) [Concomitant]
  11. RAMIPRIL (RAMIPRIL) [Concomitant]
  12. RANITIDINE (RANITIDINE) [Concomitant]
  13. TILDIEM RETARD (DILTIAZEM HYDROCHLORIDE) [Concomitant]
  14. VENTOLIN (SALBUTAMOL) [Concomitant]

REACTIONS (1)
  - Hypotension [None]
